FAERS Safety Report 11088199 (Version 5)
Quarter: 2018Q3

REPORT INFORMATION
  Report Type: Report from Study
  Country: BR (occurrence: BR)
  Receive Date: 20150504
  Receipt Date: 20180924
  Transmission Date: 20181010
  Serious: Yes (Other)
  Sender: FDA-Public Use
  Company Number: PHHY2015BR049365

PATIENT
  Sex: Female
  Weight: 50 kg

DRUGS (15)
  1. DIOVAN HCT [Suspect]
     Active Substance: HYDROCHLOROTHIAZIDE\VALSARTAN
     Dosage: 1 DF (HYDROCHLOROTHIAZIDE 25MG, VALSARTAN 320MG), QD (8 OR 9 YEARS AGO), QD
     Route: 048
  2. AMITRIPTILINA [Concomitant]
     Active Substance: AMITRIPTYLINE HYDROCHLORIDE
     Indication: ANXIETY
  3. ALENIA [Concomitant]
     Active Substance: BUDESONIDE\FORMOTEROL FUMARATE
     Indication: ASTHMA
     Dosage: UNK UNK, BID (10:00 IN THE MORNING AND 22:00 AT NIGHT) (STARTED TREATMENT 3 MONTHS AGO)
     Route: 055
  4. DIOVAN HCT [Suspect]
     Active Substance: HYDROCHLOROTHIAZIDE\VALSARTAN
     Dosage: 1 DF (VALSARTAN 12.5 MG, HYDROCHLOROTHIAZIDE 160 MG), BID
     Route: 065
  5. RIVOTRIL [Concomitant]
     Active Substance: CLONAZEPAM
     Indication: ANXIETY
     Dosage: 1 DF, QD
     Route: 048
  6. HYDROCHLOROTHIAZIDE. [Concomitant]
     Active Substance: HYDROCHLOROTHIAZIDE
     Indication: DYSURIA
     Dosage: 1 DF, QD (STARTED TREATMENT 8 OR 9 YEARS AGO AND STOPPED USING 2 MONTHS AGO)
     Route: 048
  7. AMITRIPTILINA [Concomitant]
     Active Substance: AMITRIPTYLINE HYDROCHLORIDE
     Indication: DEPRESSION
     Dosage: 0.5 DF, QD
     Route: 048
  8. DIOVAN HCT [Suspect]
     Active Substance: HYDROCHLOROTHIAZIDE\VALSARTAN
     Indication: HYPERTENSION
     Dosage: 1 DF (HYDROCHLOROTHIAZIDE 25, VALSARTAN 320 UNITS NOT REPORTED), QD (8 OR 9 YEARS AGO), QD
     Route: 048
  9. DIOVAN [Suspect]
     Active Substance: VALSARTAN
     Indication: HYPERTENSION
     Dosage: 1 DF (160, UNITS NOT REPORTED), QD
     Route: 048
  10. ANCORON [Concomitant]
     Active Substance: AMIODARONE HYDROCHLORIDE
     Indication: MYOCARDIAL INFARCTION
     Dosage: 1 DF, QD
     Route: 048
  11. NEBLOCK [Concomitant]
     Active Substance: NEBIVOLOL HYDROCHLORIDE
     Indication: HYPERTENSION
     Dosage: 1 DF, QD (AFTERNOON) (ABOUT 2 YEARS AGO)
     Route: 048
  12. AMLODIPINE [Concomitant]
     Active Substance: AMLODIPINE BESYLATE
     Indication: HEART RATE DECREASED
     Dosage: 5 MG,QD (STARTED 8 OR 9 YEARS AGO AND STOPPED USING 1 MONTH AGO)
     Route: 048
  13. ALENIA [Concomitant]
     Active Substance: BUDESONIDE\FORMOTEROL FUMARATE
     Indication: DYSPNOEA
  14. DIOVAN [Suspect]
     Active Substance: VALSARTAN
     Dosage: 320 MG, QD (ONE IN THE MORNING)
     Route: 048
  15. METFORMINE [Concomitant]
     Active Substance: METFORMIN HYDROCHLORIDE
     Indication: DIABETES MELLITUS
     Dosage: 1 DF, QD
     Route: 048

REACTIONS (18)
  - Cataract [Recovering/Resolving]
  - Lower limb fracture [Recovering/Resolving]
  - Limb injury [Unknown]
  - Hypoglycaemia [Unknown]
  - Headache [Recovered/Resolved]
  - Anxiety [Unknown]
  - Insomnia [Recovering/Resolving]
  - Malaise [Recovering/Resolving]
  - Depressed mood [Recovering/Resolving]
  - Drug ineffective [Unknown]
  - Hypoacusis [Not Recovered/Not Resolved]
  - Oedema peripheral [Unknown]
  - Inappropriate schedule of drug administration [Unknown]
  - Myocardial infarction [Recovering/Resolving]
  - Visual impairment [Unknown]
  - Diabetes mellitus [Recovered/Resolved]
  - Blood pressure increased [Recovering/Resolving]
  - Incorrect dose administered [Unknown]
